FAERS Safety Report 4822837-7 (Version None)
Quarter: 2005Q4

REPORT INFORMATION
  Report Type: 
  Country: None (occurrence: None)
  Receive Date: 20051108
  Receipt Date: 20050928
  Transmission Date: 20060501
  Serious: Yes (Death)
  Sender: FDA-Public Use
  Company Number: US-BRISTOL-MYERS SQUIBB COMPANY-13124946

PATIENT
  Age: 90 Year
  Sex: Female

DRUGS (1)
  1. COUMADIN [Suspect]
     Indication: VENOUS THROMBOSIS
     Route: 048
     Dates: start: 20011026, end: 20050520

REACTIONS (1)
  - INTESTINAL ISCHAEMIA [None]
